FAERS Safety Report 8937789 (Version 1)
Quarter: 2012Q4

REPORT INFORMATION
  Report Type: 
  Country: DK (occurrence: DK)
  Receive Date: 20121130
  Receipt Date: 20121130
  Transmission Date: 20130627
  Serious: Yes (Hospitalization, Other)
  Sender: FDA-Public Use
  Company Number: DK-WATSON-2012-20717

PATIENT
  Age: 80 Year
  Sex: Female

DRUGS (12)
  1. METRONIDAZOLE (WATSON LABORATORIES) [Suspect]
     Indication: PSEUDOMEMBRANOUS COLITIS
     Dosage: UNK, unknown
     Route: 065
  2. VANCOMYCIN HCL (WATSON LABORATORIES) [Suspect]
     Indication: CLOSTRIDIAL INFECTION
     Dosage: UNK, unknown
     Route: 048
  3. CEFALEXIN [Concomitant]
     Indication: JOINT INJURY
     Dosage: UNK, unknown
     Route: 065
  4. CEFUROXIME [Concomitant]
     Indication: JOINT INJURY
     Dosage: 1.5 g, unknown
     Route: 065
  5. CEFUROXIME [Concomitant]
     Dosage: 750 mg, qid
     Route: 065
  6. BICALUTAMIDE [Concomitant]
     Indication: PROSTATE CANCER
     Dosage: UNK, unknown
     Route: 065
  7. SOLIFENACIN [Concomitant]
     Indication: PROSTATE CANCER
     Dosage: UNK, unknown
     Route: 065
  8. TAMSULOSIN [Concomitant]
     Indication: PROSTATE CANCER
     Dosage: UNK, unknown
     Route: 065
  9. SIMVASTATIN [Concomitant]
     Indication: PRODUCT USED FOR UNKNOWN INDICATION
     Dosage: UNK, unknown
     Route: 065
  10. LOSARTAN                           /01121602/ [Concomitant]
     Indication: ESSENTIAL HYPERTENSION
     Dosage: UNK, unknown
     Route: 065
  11. CLOPIDOGREL [Concomitant]
     Indication: TRANSIENT ISCHAEMIC ATTACK
     Dosage: UNK, unknown
     Route: 065
  12. DICLOXACILLIN [Concomitant]
     Indication: JOINT INJURY
     Dosage: 2 g, unknown
     Route: 065

REACTIONS (1)
  - Drug ineffective [Unknown]
